FAERS Safety Report 19394748 (Version 1)
Quarter: 2021Q2

REPORT INFORMATION
  Report Type: Spontaneous
  Country: US (occurrence: US)
  Receive Date: 20210609
  Receipt Date: 20210609
  Transmission Date: 20210717
  Serious: No
  Sender: FDA-Public Use
  Company Number: None

PATIENT
  Age: 60 Year
  Sex: Male
  Weight: 110 kg

DRUGS (1)
  1. CIPROFLOXACIN (CIPROFLOXACIN HCL 500MG TAB) [Suspect]
     Active Substance: CIPROFLOXACIN HYDROCHLORIDE
     Indication: DIABETES MELLITUS
     Route: 048
     Dates: start: 20210407, end: 20210522

REACTIONS (4)
  - Pollakiuria [None]
  - Serratia infection [None]
  - Drug interaction [None]
  - Urinary tract infection [None]

NARRATIVE: CASE EVENT DATE: 20210522
